FAERS Safety Report 8972367 (Version 1)
Quarter: 2012Q4

REPORT INFORMATION
  Report Type: 
  Country: AU (occurrence: AU)
  Receive Date: 20121218
  Receipt Date: 20121218
  Transmission Date: 20130627
  Serious: Yes (Other)
  Sender: FDA-Public Use
  Company Number: PHHY2012AU115131

PATIENT
  Sex: Male

DRUGS (3)
  1. BACLOFEN [Suspect]
  2. PARACETAMOL [Suspect]
  3. CODEINE [Suspect]

REACTIONS (2)
  - Coma scale abnormal [Unknown]
  - Overdose [Unknown]
